FAERS Safety Report 8416950-5 (Version None)
Quarter: 2012Q2

REPORT INFORMATION
  Report Type: 
  Country: None (occurrence: None)
  Receive Date: 20120606
  Receipt Date: 20120605
  Transmission Date: 20120825
  Serious: Yes (Death)
  Sender: FDA-Public Use
  Company Number: US-PFIZER INC-2008154279

PATIENT
  Age: 52 Year
  Sex: Male

DRUGS (8)
  1. METFORMIN HCL [Suspect]
     Dosage: UNK
     Route: 048
     Dates: end: 20070101
  2. DYAZIDE [Suspect]
     Dosage: UNK
     Route: 048
     Dates: end: 20070101
  3. LITHIUM [Suspect]
     Dosage: UNK
     Route: 048
     Dates: end: 20070101
  4. HYDROGEN PEROXIDE SOLUTION [Suspect]
     Dosage: UNK
     Route: 048
     Dates: end: 20070101
  5. OLANZAPINE [Suspect]
     Dosage: UNK
     Route: 048
     Dates: end: 20070101
  6. MEVACOR [Suspect]
     Dosage: UNK
     Route: 048
     Dates: end: 20070101
  7. VERAPAMIL HCL [Suspect]
     Dosage: UNK
     Route: 048
     Dates: end: 20070101
  8. GLIPIZIDE [Suspect]
     Dosage: UNK
     Route: 048
     Dates: end: 20070101

REACTIONS (3)
  - INTENTIONAL DRUG MISUSE [None]
  - TOXICITY TO VARIOUS AGENTS [None]
  - COMPLETED SUICIDE [None]
